FAERS Safety Report 9638758 (Version 1)
Quarter: 2013Q4

REPORT INFORMATION
  Report Type: Spontaneous
  Country: US (occurrence: US)
  Receive Date: 20131022
  Receipt Date: 20131022
  Transmission Date: 20140711
  Serious: No
  Sender: FDA-Public Use
  Company Number: US-BRISTOL-MYERS SQUIBB COMPANY-19211655

PATIENT
  Age: 57 Year
  Sex: Female
  Weight: 97.05 kg

DRUGS (6)
  1. ELIQUIS [Suspect]
     Indication: ATRIAL FIBRILLATION
     Dosage: TABS
  2. TRAZODONE HCL [Concomitant]
  3. CYTOMEL [Concomitant]
  4. ZANAFLEX [Concomitant]
  5. POTASSIUM [Concomitant]
  6. AMLODIPINE [Concomitant]

REACTIONS (4)
  - Joint swelling [Unknown]
  - Weight increased [Unknown]
  - Fatigue [Unknown]
  - Feeling abnormal [Unknown]
